FAERS Safety Report 6113018-8 (Version None)
Quarter: 2009Q1

REPORT INFORMATION
  Report Type: 
  Country: None (occurrence: None)
  Receive Date: 20090312
  Receipt Date: 20090306
  Transmission Date: 20090719
  Serious: Yes (Other)
  Sender: FDA-Public Use
  Company Number: B0562398A

PATIENT
  Age: 19 Year
  Sex: Male

DRUGS (4)
  1. PAXIL [Suspect]
     Indication: DEPRESSIVE SYMPTOM
     Dosage: 20MG TWICE PER DAY
     Route: 048
     Dates: start: 20090115
  2. AMOXAN [Suspect]
     Indication: DEPRESSIVE SYMPTOM
     Route: 048
     Dates: start: 20090121
  3. LENDORMIN [Concomitant]
     Indication: INSOMNIA
     Dosage: .25MG PER DAY
     Route: 048
     Dates: start: 20090121
  4. DEPAKENE [Concomitant]

REACTIONS (3)
  - CONVULSION [None]
  - HYPERVENTILATION [None]
  - LOSS OF CONSCIOUSNESS [None]
